FAERS Safety Report 5914919-3 (Version None)
Quarter: 2008Q4

REPORT INFORMATION
  Report Type: 
  Country: None (occurrence: None)
  Receive Date: 20081010
  Receipt Date: 20081010
  Transmission Date: 20090506
  Serious: Yes (Hospitalization)
  Sender: FDA-Public Use
  Company Number: PHEH2000US00883

PATIENT
  Sex: Male
  Weight: 109.3 kg

DRUGS (10)
  1. MYCOPHENOLIC ACID [Suspect]
     Dosage: 720 MG, BID
     Route: 048
     Dates: start: 20000224
  2. NEORAL [Suspect]
     Route: 048
  3. PREDNISONE [Suspect]
     Route: 048
  4. LOPRESSOR [Concomitant]
  5. PLAVIX [Concomitant]
  6. MULTI-VITAMINS [Concomitant]
  7. FOLIC ACID [Concomitant]
  8. AXID [Concomitant]
  9. COLACE (DOCUSATE SODIUM) [Concomitant]
  10. OXYBUTYNIN [Concomitant]

REACTIONS (1)
  - PNEUMONIA [None]
